FAERS Safety Report 9660426 (Version 4)
Quarter: 2013Q4

REPORT INFORMATION
  Report Type: Spontaneous
  Country: JP (occurrence: JP)
  Receive Date: 20131031
  Receipt Date: 20131218
  Transmission Date: 20140711
  Serious: Yes (Hospitalization)
  Sender: FDA-Public Use
  Company Number: JP-B.I. PHARMACEUTICALS,INC./RIDGEFIELD-2013-BI-34435GD

PATIENT
  Age: 70 Year
  Sex: Male
  Weight: 44.15 kg

DRUGS (12)
  1. PRADAXA [Suspect]
     Dosage: 220 MG
     Route: 065
     Dates: start: 201302, end: 20130625
  2. NEXIUM [Concomitant]
     Indication: GASTROOESOPHAGEAL REFLUX DISEASE
     Dosage: 20 MG
     Route: 048
     Dates: start: 20130314
  3. CAPTORIL [Concomitant]
     Indication: HYPERTENSION
     Dosage: 25 MG
     Route: 048
     Dates: start: 20100609
  4. FRANDOL [Concomitant]
     Indication: ANGINA PECTORIS
     Dosage: 40 MG
     Route: 048
     Dates: start: 20100609
  5. MAINTATE [Concomitant]
     Indication: HYPERTENSION
     Dosage: 2.5 MG
     Route: 048
     Dates: start: 20100609
  6. MYSLEE [Concomitant]
     Indication: INSOMNIA
     Dosage: 5 MG
     Route: 048
     Dates: start: 20100910
  7. ROHYPNOL [Concomitant]
     Indication: INSOMNIA
     Dosage: 1 MG
     Route: 048
     Dates: start: 20100910
  8. BISOLVON [Concomitant]
     Indication: PRODUCTIVE COUGH
     Dosage: 12 MG
     Route: 048
     Dates: start: 20100910
  9. URSO [Concomitant]
     Indication: HEPATIC FUNCTION ABNORMAL
     Dosage: 600 MG
     Route: 048
     Dates: start: 20100910
  10. NEUFAN [Concomitant]
     Indication: HYPERURICAEMIA
     Dosage: 100 MG
     Route: 048
     Dates: start: 20110915
  11. CALONAL [Concomitant]
     Indication: ANALGESIC THERAPY
     Dosage: 400 MG
     Route: 048
     Dates: start: 20120105
  12. LOXOPROFEN [Concomitant]
     Indication: ANALGESIC THERAPY
     Dosage: 60 MG
     Route: 048
     Dates: start: 20121025

REACTIONS (8)
  - Acute respiratory failure [Not Recovered/Not Resolved]
  - Pulmonary alveolar haemorrhage [Recovered/Resolved]
  - Hypoxia [Not Recovered/Not Resolved]
  - Dyspnoea [Not Recovered/Not Resolved]
  - Haemoptysis [Not Recovered/Not Resolved]
  - Interstitial lung disease [Not Recovered/Not Resolved]
  - Pyrexia [Not Recovered/Not Resolved]
  - Pneumonia bacterial [Recovered/Resolved]
